FAERS Safety Report 18130845 (Version 3)
Quarter: 2020Q3

REPORT INFORMATION
  Report Type: Spontaneous
  Country: DE (occurrence: DE)
  Receive Date: 20200810
  Receipt Date: 20200916
  Transmission Date: 20201103
  Serious: Yes (Life-Threatening, Hospitalization)
  Sender: FDA-Public Use
  Company Number: DE-AMERICAN REGENT INC-2020001622

PATIENT
  Sex: Male

DRUGS (2)
  1. FERINJECT [Suspect]
     Active Substance: FERRIC CARBOXYMALTOSE
     Indication: MALABSORPTION
     Dosage: UNK, ^FOR YEARS^
  2. FERINJECT [Suspect]
     Active Substance: FERRIC CARBOXYMALTOSE
     Indication: INFLAMMATORY BOWEL DISEASE
     Dosage: 500 MILLIGRAM, MONTHLY
     Route: 042
     Dates: start: 2013, end: 20200701

REACTIONS (5)
  - Spinal fracture [Unknown]
  - Haemolysis [Unknown]
  - Upper limb fracture [Unknown]
  - Seizure [Unknown]
  - Hypophosphataemia [Recovered/Resolved]

NARRATIVE: CASE EVENT DATE: 202008
